FAERS Safety Report 6706150-9 (Version None)
Quarter: 2010Q2

REPORT INFORMATION
  Report Type: 
  Country: None (occurrence: None)
  Receive Date: 20100503
  Receipt Date: 20100425
  Transmission Date: 20101027
  Serious: Yes (Hospitalization)
  Sender: FDA-Public Use
  Company Number: US-SANOFI-AVENTIS-2010SA024332

PATIENT
  Age: 68 Year
  Sex: Female

DRUGS (2)
  1. GLYBURIDE [Suspect]
     Route: 065
  2. METFORMIN HCL [Suspect]
     Route: 065
     Dates: end: 20080101

REACTIONS (1)
  - MYOCARDIAL INFARCTION [None]
